FAERS Safety Report 11534615 (Version 1)
Quarter: 2015Q3

REPORT INFORMATION
  Report Type: Report from Study
  Country: US (occurrence: US)
  Receive Date: 20150922
  Receipt Date: 20150922
  Transmission Date: 20151125
  Serious: Yes (Hospitalization, Other)
  Sender: FDA-Public Use
  Company Number: PHEH2015US005634

PATIENT
  Age: 24 Year
  Sex: Male

DRUGS (2)
  1. RAPAMYCIN [Concomitant]
     Active Substance: SIROLIMUS
     Indication: PRODUCT USED FOR UNKNOWN INDICATION
     Route: 065
  2. AFINITOR [Suspect]
     Active Substance: EVEROLIMUS
     Indication: ANGIOMYOLIPOMA
     Dosage: 10 MG, QD
     Route: 048
     Dates: start: 20140501

REACTIONS (7)
  - Palpitations [Unknown]
  - Generalised tonic-clonic seizure [Recovered/Resolved]
  - Abdominal discomfort [Unknown]
  - Platelet count decreased [Unknown]
  - Constipation [Unknown]
  - Headache [Recovered/Resolved]
  - Stomatitis [Unknown]

NARRATIVE: CASE EVENT DATE: 20140601
